FAERS Safety Report 24283913 (Version 1)
Quarter: 2024Q3

REPORT INFORMATION
  Report Type: Report from Study
  Country: US (occurrence: US)
  Receive Date: 20240905
  Receipt Date: 20240905
  Transmission Date: 20241017
  Serious: Yes (Other)
  Sender: ABBVIE
  Company Number: US-ABBVIE-5901829

PATIENT
  Age: 27 Year
  Sex: Male

DRUGS (2)
  1. SKYRIZI [Suspect]
     Active Substance: RISANKIZUMAB-RZAA
     Indication: Psoriasis
     Route: 058
     Dates: start: 20210407, end: 202111
  2. SKYRIZI [Suspect]
     Active Substance: RISANKIZUMAB-RZAA
     Route: 058
     Dates: start: 202404

REACTIONS (3)
  - Intervertebral disc degeneration [Recovered/Resolved]
  - Psoriasis [Recovered/Resolved]
  - Hereditary disorder [Unknown]

NARRATIVE: CASE EVENT DATE: 20220101
